FAERS Safety Report 6765185-0 (Version None)
Quarter: 2010Q2

REPORT INFORMATION
  Report Type: 
  Country: None (occurrence: None)
  Receive Date: 20100610
  Receipt Date: 20100610
  Transmission Date: 20101027
  Serious: Yes (Life-Threatening)
  Sender: FDA-Public Use
  Company Number: None

PATIENT
  Age: 66 Year
  Sex: Female
  Weight: 73.9363 kg

DRUGS (4)
  1. DICLOFENAC SODIUM [Suspect]
     Indication: INTERVERTEBRAL DISC DEGENERATION
     Dosage: 5 TO 6 MONTHS (2 TIMES A DAY)
     Dates: start: 20090501, end: 20091001
  2. DICLOFENAC SODIUM [Suspect]
     Indication: MUSCULOSKELETAL STIFFNESS
     Dosage: 5 TO 6 MONTHS (2 TIMES A DAY)
     Dates: start: 20090501, end: 20091001
  3. DICLOFENAC SODIUM [Suspect]
     Indication: PAIN
     Dosage: 5 TO 6 MONTHS (2 TIMES A DAY)
     Dates: start: 20090501, end: 20091001
  4. VOLTAREN [Suspect]
     Dates: start: 20100406, end: 20100508

REACTIONS (1)
  - HEPATIC ENZYME INCREASED [None]
